FAERS Safety Report 16840454 (Version 1)
Quarter: 2019Q3

REPORT INFORMATION
  Report Type: Spontaneous
  Country: US (occurrence: US)
  Receive Date: 20190923
  Receipt Date: 20190923
  Transmission Date: 20191005
  Serious: Yes (Death, Other)
  Sender: FDA-Public Use
  Company Number: US-PFIZER INC-2019107230

PATIENT
  Age: 33 Year
  Sex: Male

DRUGS (1)
  1. PRISTIQ EXTENDED-RELEASE [Suspect]
     Active Substance: DESVENLAFAXINE SUCCINATE
     Indication: BIPOLAR DISORDER
     Dosage: 100 MG, TWICE DAILY (1 TABLET, TWICE DAILY)
     Route: 048
     Dates: start: 201704, end: 20190728

REACTIONS (3)
  - Product use in unapproved indication [Unknown]
  - Substance abuse [Fatal]
  - Off label use [Unknown]

NARRATIVE: CASE EVENT DATE: 201704
